FAERS Safety Report 15853216 (Version 3)
Quarter: 2021Q1

REPORT INFORMATION
  Report Type: Spontaneous
  Country: US (occurrence: US)
  Receive Date: 20190122
  Receipt Date: 20210203
  Transmission Date: 20210419
  Serious: Yes (Other)
  Sender: FDA-Public Use
  Company Number: US-GLAXOSMITHKLINE-US2019GSK008414

PATIENT
  Age: 47 Year
  Sex: Female

DRUGS (3)
  1. FLOLAN [Suspect]
     Active Substance: EPOPROSTENOL SODIUM
     Indication: PULMONARY ARTERIAL HYPERTENSION
     Dosage: 35 DF, CO, 35 NG/KG/MIN
     Dates: start: 20180424
  2. FLOLAN [Suspect]
     Active Substance: EPOPROSTENOL SODIUM
     Indication: PULMONARY ARTERIAL HYPERTENSION
     Dosage: UNK
     Dates: start: 20180424
  3. FLOLAN [Suspect]
     Active Substance: EPOPROSTENOL SODIUM
     Indication: PULMONARY ARTERIAL HYPERTENSION
     Dosage: 40.32 DF, CO, 40.32 NG/KG/MIN
     Dates: start: 20180426

REACTIONS (4)
  - Rash [Unknown]
  - Malaise [Unknown]
  - Device related infection [Unknown]
  - Fluid retention [Unknown]

NARRATIVE: CASE EVENT DATE: 201901
